FAERS Safety Report 18717918 (Version 1)
Quarter: 2021Q1

REPORT INFORMATION
  Report Type: Spontaneous
  Country: US (occurrence: US)
  Receive Date: 20210108
  Receipt Date: 20210108
  Transmission Date: 20210419
  Serious: Yes (Death)
  Sender: FDA-Public Use
  Company Number: None

PATIENT
  Age: 74 Year
  Sex: Male

DRUGS (11)
  1. METOPROLOL TARTRATE 25 MG [Concomitant]
     Active Substance: METOPROLOL TARTRATE
  2. PROBIOTIC ADULT CAPSULES [Concomitant]
  3. CLONIDINE 0.1MG [Concomitant]
     Active Substance: CLONIDINE
  4. MULTIVITAMIN [Concomitant]
     Active Substance: VITAMINS
  5. SIMVASTATIN 40 MG [Concomitant]
     Active Substance: SIMVASTATIN
  6. TEMOZOLOMIDE. [Suspect]
     Active Substance: TEMOZOLOMIDE
     Indication: BRAIN NEOPLASM MALIGNANT
     Route: 048
     Dates: start: 20201214, end: 20210103
  7. TAMSULOSIN 0.4 MG [Concomitant]
     Active Substance: TAMSULOSIN
  8. OCUVITE [Concomitant]
     Active Substance: VITAMINS
  9. GABAPENTIN 100MG [Concomitant]
     Active Substance: GABAPENTIN
  10. LEVETIRACETAM 500 [Concomitant]
     Active Substance: LEVETIRACETAM
  11. TELMISARTAN 40 MG [Concomitant]
     Active Substance: TELMISARTAN

REACTIONS (2)
  - Brain neoplasm malignant [None]
  - Disease complication [None]

NARRATIVE: CASE EVENT DATE: 20210104
